FAERS Safety Report 8001111-4 (Version None)
Quarter: 2011Q4

REPORT INFORMATION
  Report Type: 
  Country: None (occurrence: None)
  Receive Date: 20111222
  Receipt Date: 20111219
  Transmission Date: 20120403
  Serious: Yes (Death)
  Sender: FDA-Public Use
  Company Number: US-PFIZER INC-2011308454

PATIENT
  Age: 31 Year
  Sex: Female

DRUGS (4)
  1. LISINOPRIL [Suspect]
     Dosage: 2.5 MG, 10 TABS
     Route: 048
  2. AMIODARONE HCL [Suspect]
     Dosage: 200 MG, 10 TABS
     Route: 048
  3. DILTIAZEM HCL [Suspect]
     Dosage: 120 MG, 20 TABS
     Route: 048
  4. METOPROLOL [Suspect]
     Dosage: 50 MG, 10 TABS
     Route: 048

REACTIONS (2)
  - COMPLETED SUICIDE [None]
  - DRUG ADMINISTRATION ERROR [None]
